FAERS Safety Report 6827152-8 (Version None)
Quarter: 2010Q3

REPORT INFORMATION
  Report Type: 
  Country: None (occurrence: None)
  Receive Date: 20100709
  Receipt Date: 20100628
  Transmission Date: 20110219
  Serious: Yes (Hospitalization)
  Sender: FDA-Public Use
  Company Number: ES-ELI_LILLY_AND_COMPANY-ES201007001475

PATIENT
  Sex: Female
  Weight: 88 kg

DRUGS (4)
  1. FORTEO [Suspect]
     Indication: OSTEOPOROSIS
     Dosage: 20 UG, DAILY (1/D)
     Route: 058
     Dates: start: 20090320
  2. ADVAGRAF [Concomitant]
     Indication: RENAL TRANSPLANT
     Dosage: UNK, UNKNOWN
     Route: 048
  3. ACETAMINOPHEN [Concomitant]
     Indication: PAIN
     Dosage: UNK, UNKNOWN
     Route: 048
  4. INSULINA                           /01223201/ [Concomitant]
     Indication: DIABETES MELLITUS
     Dosage: UNK, UNKNOWN
     Route: 058

REACTIONS (1)
  - WOUND INFECTION [None]
